FAERS Safety Report 16430165 (Version 3)
Quarter: 2020Q2

REPORT INFORMATION
  Report Type: Spontaneous
  Country: US (occurrence: US)
  Receive Date: 20190614
  Receipt Date: 20200602
  Transmission Date: 20200713
  Serious: Yes (Other)
  Sender: FDA-Public Use
  Company Number: US-GILEAD-2019-0413033

PATIENT
  Age: 35 Year
  Sex: Female

DRUGS (5)
  1. TRUVADA [Suspect]
     Active Substance: EMTRICITABINE\TENOFOVIR DISOPROXIL FUMARATE
     Indication: HIV INFECTION
     Dosage: UNK
     Route: 065
     Dates: start: 20100930, end: 20101229
  2. BIKTARVY [Concomitant]
     Active Substance: BICTEGRAVIR SODIUM\EMTRICITABINE\TENOFOVIR ALAFENAMIDE FUMARATE
  3. ATRIPLA [Suspect]
     Active Substance: EFAVIRENZ\EMTRICITABINE\TENOFOVIR DISOPROXIL FUMARATE
     Indication: HIV INFECTION
     Dosage: UNK
     Route: 065
     Dates: start: 201308, end: 201404
  4. STRIBILD [Suspect]
     Active Substance: COBICISTAT\ELVITEGRAVIR\EMTRICITABINE\TENOFOVIR DISOPROXIL FUMARATE
     Indication: HIV INFECTION
     Dosage: UNK
     Route: 048
     Dates: start: 201509, end: 20180102
  5. GENVOYA [Concomitant]
     Active Substance: COBICISTAT\ELVITEGRAVIR\EMTRICITABINE\TENOFOVIR ALAFENAMIDE FUMARATE

REACTIONS (9)
  - Anxiety [Unknown]
  - Pain [Unknown]
  - Renal failure [Unknown]
  - Neuropathy peripheral [Recovered/Resolved]
  - Nephrolithiasis [Unknown]
  - Anhedonia [Unknown]
  - Economic problem [Unknown]
  - Acute kidney injury [Not Recovered/Not Resolved]
  - Emotional distress [Unknown]

NARRATIVE: CASE EVENT DATE: 2018
